FAERS Safety Report 5198722-0 (Version None)
Quarter: 2007Q1

REPORT INFORMATION
  Report Type: 
  Country: None (occurrence: None)
  Receive Date: 20070104
  Receipt Date: 20061229
  Transmission Date: 20070707
  Serious: Yes (Hospitalization)
  Sender: FDA-Public Use
  Company Number: US-GLAXOSMITHKLINE-A0632853A

PATIENT
  Sex: Female

DRUGS (11)
  1. ADVAIR DISKUS 100/50 [Suspect]
     Indication: ASTHMA
     Dosage: 1PUFF PER DAY
     Route: 055
     Dates: end: 20061228
  2. COZAAR [Concomitant]
  3. NORVASC [Concomitant]
  4. ISOSORBIDE MONONITRATE [Concomitant]
  5. HYDROCHLOROTHIAZIDE [Concomitant]
  6. CRESTOR [Concomitant]
  7. VESICARE [Concomitant]
  8. AMITRIPTYLINE HCL [Concomitant]
  9. COREG [Concomitant]
  10. NITROGLYCERIN [Concomitant]
  11. SPIRONOLACTONE [Concomitant]

REACTIONS (14)
  - BONE PAIN [None]
  - BRONCHITIS [None]
  - CATARACT [None]
  - COUGH [None]
  - DIZZINESS [None]
  - DYSPHONIA [None]
  - EAR DISCOMFORT [None]
  - HEADACHE [None]
  - PNEUMONIA [None]
  - POSTNASAL DRIP [None]
  - PROCEDURAL COMPLICATION [None]
  - SINUS DISORDER [None]
  - THROAT IRRITATION [None]
  - VISUAL DISTURBANCE [None]
